FAERS Safety Report 15365426 (Version 3)
Quarter: 2019Q3

REPORT INFORMATION
  Report Type: Spontaneous
  Country: US (occurrence: US)
  Receive Date: 20180910
  Receipt Date: 20190726
  Transmission Date: 20191004
  Serious: Yes (Other)
  Sender: FDA-Public Use
  Company Number: US-PFIZER INC-2018364128

PATIENT
  Age: 54 Year
  Sex: Female
  Weight: 53.52 kg

DRUGS (2)
  1. LYRICA [Suspect]
     Active Substance: PREGABALIN
     Dosage: 150 MG, 2X/DAY (1 CAPSULE TWO TIMES EVERY DAY)
     Route: 048
  2. CYMBALTA [Concomitant]
     Active Substance: DULOXETINE HYDROCHLORIDE
     Dosage: 60 MG, 1X/DAY
     Dates: start: 201807

REACTIONS (7)
  - Sleep disorder [Unknown]
  - Depression [Unknown]
  - Fibromyalgia [Unknown]
  - Appendicitis perforated [Unknown]
  - Restless legs syndrome [Unknown]
  - Pain [Unknown]
  - Irritable bowel syndrome [Unknown]

NARRATIVE: CASE EVENT DATE: 201905
